FAERS Safety Report 8691099 (Version 2)
Quarter: 2012Q4

REPORT INFORMATION
  Report Type: 
  Country: US (occurrence: None)
  Receive Date: 20120711
  Receipt Date: 20120917
  Transmission Date: 20130627
  Serious: Yes (Other)
  Sender: FDA-Public Use
  Company Number: 2012AP002001

PATIENT
  Age: 76 Year
  Sex: Male

DRUGS (2)
  1. AMIODARONE HYDROCHLORIDE [Suspect]
     Indication: TACHYARRHYTHMIA
  2. AMIODARONE HYDROCHLORIDE [Suspect]
     Indication: OFF LABEL USE

REACTIONS (4)
  - NEUROPATHY PERIPHERAL [None]
  - MYOPATHY [None]
  - DYSPHAGIA [None]
  - OFF LABEL USE [None]
